FAERS Safety Report 13152641 (Version 1)
Quarter: 2017Q1

REPORT INFORMATION
  Report Type: Report from Study
  Country: CA (occurrence: CA)
  Receive Date: 20170125
  Receipt Date: 20170125
  Transmission Date: 20170428
  Serious: Yes (Other)
  Sender: FDA-Public Use
  Company Number: CA-BEH-2017077606

PATIENT
  Age: 63 Year
  Sex: Female

DRUGS (4)
  1. FLEXERIL [Concomitant]
     Active Substance: CYCLOBENZAPRINE HYDROCHLORIDE
     Dosage: UNK, PRN
     Route: 065
  2. HIZENTRA [Suspect]
     Active Substance: HUMAN IMMUNOGLOBULIN G
     Dosage: UNK
     Route: 058
     Dates: start: 20170123
  3. HIZENTRA [Suspect]
     Active Substance: HUMAN IMMUNOGLOBULIN G
     Indication: SECONDARY IMMUNODEFICIENCY
     Dosage: 10 G, QW
     Route: 058
  4. LYRICA [Concomitant]
     Active Substance: PREGABALIN
     Route: 065

REACTIONS (2)
  - Metamorphopsia [Recovered/Resolved]
  - Infusion site erythema [Unknown]

NARRATIVE: CASE EVENT DATE: 20170120
